FAERS Safety Report 7778177-X (Version None)
Quarter: 2011Q3

REPORT INFORMATION
  Report Type: 
  Country: None (occurrence: None)
  Receive Date: 20110926
  Receipt Date: 20110914
  Transmission Date: 20111222
  Serious: Yes (Death, Hospitalization)
  Sender: FDA-Public Use
  Company Number: FR-SANOFI-AVENTIS-2011SA059743

PATIENT
  Age: 61 Year
  Sex: Male

DRUGS (8)
  1. LASIX [Suspect]
     Route: 048
     Dates: end: 20110714
  2. SIMVASTATIN [Concomitant]
     Route: 048
     Dates: end: 20110714
  3. RAMIPRIL [Suspect]
     Route: 048
     Dates: end: 20110714
  4. PLAVIX [Concomitant]
     Indication: THROMBOSIS PROPHYLAXIS
     Route: 048
     Dates: end: 20110714
  5. METFORMIN HCL [Suspect]
     Route: 048
     Dates: end: 20110714
  6. DIAMICRON [Concomitant]
     Route: 048
     Dates: end: 20110714
  7. NITROGLYCERIN [Concomitant]
     Route: 002
  8. BISOPROLOL FUMARATE [Concomitant]
     Route: 048
     Dates: end: 20110714

REACTIONS (3)
  - RENAL FAILURE ACUTE [None]
  - DRUG LEVEL INCREASED [None]
  - LACTIC ACIDOSIS [None]
